FAERS Safety Report 5398061-9 (Version None)
Quarter: 2007Q3

REPORT INFORMATION
  Report Type: 
  Country: None (occurrence: None)
  Receive Date: 20070726
  Receipt Date: 20070714
  Transmission Date: 20080115
  Serious: Yes (Other)
  Sender: FDA-Public Use
  Company Number: US-PFIZER INC-2007059511

PATIENT
  Sex: Female
  Weight: 58.1 kg

DRUGS (3)
  1. CHANTIX [Suspect]
     Indication: SMOKING CESSATION THERAPY
  2. PERCOCET [Suspect]
     Dates: start: 20070701, end: 20070701
  3. TRAZODONE HCL [Concomitant]

REACTIONS (3)
  - MALIGNANT BREAST LUMP REMOVAL [None]
  - NAUSEA [None]
  - PRURITUS [None]
